FAERS Safety Report 18316507 (Version 1)
Quarter: 2020Q3

REPORT INFORMATION
  Report Type: Spontaneous
  Country: RU (occurrence: RU)
  Receive Date: 20200927
  Receipt Date: 20200927
  Transmission Date: 20201103
  Serious: Yes (Other)
  Sender: FDA-Public Use
  Company Number: RU-ROCHE-2679326

PATIENT
  Age: 30 Year
  Sex: Female

DRUGS (2)
  1. COTELLIC [Suspect]
     Active Substance: COBIMETINIB
     Indication: MALIGNANT MELANOMA
     Route: 048
     Dates: start: 20190709
  2. ZELBORAF [Suspect]
     Active Substance: VEMURAFENIB
     Indication: MALIGNANT MELANOMA
     Dosage: 1440 MG PER DAY
     Route: 048
     Dates: start: 20190709

REACTIONS (7)
  - Anaemia [Unknown]
  - Yellow skin [Unknown]
  - Dry mouth [Unknown]
  - Alopecia [Unknown]
  - Diarrhoea [Unknown]
  - Skin toxicity [Unknown]
  - Photosensitivity reaction [Unknown]

NARRATIVE: CASE EVENT DATE: 20190722
